FAERS Safety Report 9858345 (Version 1)
Quarter: 2014Q1

REPORT INFORMATION
  Report Type: Spontaneous
  Country: US (occurrence: None)
  Receive Date: 20140130
  Receipt Date: 20140130
  Transmission Date: 20141002
  Serious: Yes (Hospitalization, Other)
  Sender: FDA-Public Use
  Company Number: None

PATIENT
  Age: 51 Year
  Sex: Female
  Weight: 57.15 kg

DRUGS (3)
  1. SAVELLA [Suspect]
     Indication: PAIN
     Dosage: TAKEN BY MOUTH, ONE IN AM AND PM
     Route: 048
  2. SAVELLA [Suspect]
     Dosage: TAKEN BY MOUTH, ONE IN AM AND PM
     Route: 048
  3. SAVELLA [Suspect]
     Indication: BACK PAIN
     Dosage: TAKEN BY MOUTH, ONE IN AM AND PM
     Route: 048

REACTIONS (9)
  - Asthenia [None]
  - Fall [None]
  - Soft tissue disorder [None]
  - Muscle disorder [None]
  - Gastrooesophageal reflux disease [None]
  - Hiatus hernia [None]
  - Acquired oesophageal web [None]
  - Palpitations [None]
  - Heart rate increased [None]
